FAERS Safety Report 15431374 (Version 4)
Quarter: 2022Q1

REPORT INFORMATION
  Report Type: Spontaneous
  Country: CO (occurrence: CO)
  Receive Date: 20180926
  Receipt Date: 20220217
  Transmission Date: 20220423
  Serious: Yes (Other)
  Sender: FDA-Public Use
  Company Number: CO-BIOMARINAP-CO-2018-120028

PATIENT
  Age: 6 Year
  Sex: Female
  Weight: 16 kg

DRUGS (1)
  1. VIMIZIM [Suspect]
     Active Substance: ELOSULFASE ALFA
     Indication: Mucopolysaccharidosis IV
     Dosage: 32 MILLIGRAM, QW
     Route: 042
     Dates: start: 20150820

REACTIONS (5)
  - Knee deformity [Not Recovered/Not Resolved]
  - Orthopaedic procedure [Unknown]
  - Visual impairment [Unknown]
  - Hypoacusis [Unknown]
  - Mobility decreased [Unknown]
